FAERS Safety Report 4433073-0 (Version None)
Quarter: 2004Q3

REPORT INFORMATION
  Report Type: 
  Country: None (occurrence: None)
  Receive Date: 20040823
  Receipt Date: 20040812
  Transmission Date: 20050211
  Serious: Yes (Other)
  Sender: FDA-Public Use
  Company Number: USA-2004-0016432

PATIENT
  Age: 50 Year
  Sex: Male

DRUGS (2)
  1. OXYCONTIN [Suspect]
     Indication: PAIN
  2. EFFEXOR [Concomitant]

REACTIONS (3)
  - DRUG ABUSER [None]
  - DRUG EFFECT DECREASED [None]
  - LIVER TRANSPLANT [None]
